FAERS Safety Report 5326784-6 (Version None)
Quarter: 2007Q2

REPORT INFORMATION
  Report Type: 
  Country: None (occurrence: None)
  Receive Date: 20070516
  Receipt Date: 20070507
  Transmission Date: 20071010
  Serious: Yes (Hospitalization)
  Sender: FDA-Public Use
  Company Number: TW-PFIZER INC-2007036776

PATIENT
  Age: 40 Year
  Sex: Male

DRUGS (4)
  1. AMLODIPINE [Suspect]
     Route: 048
  2. AMLODIPINE [Suspect]
  3. GLIPIZIDE [Concomitant]
  4. RANITIDINE [Concomitant]
     Indication: DUODENAL ULCER

REACTIONS (4)
  - BRADYCARDIA [None]
  - HYPOTENSION [None]
  - INTENTIONAL OVERDOSE [None]
  - SUICIDE ATTEMPT [None]
